FAERS Safety Report 9448622 (Version 1)
Quarter: 2013Q3

REPORT INFORMATION
  Report Type: Spontaneous
  Country: AU (occurrence: AU)
  Receive Date: 20130808
  Receipt Date: 20130808
  Transmission Date: 20140515
  Serious: Yes (Other)
  Sender: FDA-Public Use
  Company Number: PHHY2013AU084843

PATIENT
  Sex: Female

DRUGS (1)
  1. GILENYA [Suspect]
     Route: 048

REACTIONS (1)
  - Bundle branch block left [Unknown]
